FAERS Safety Report 10490428 (Version 1)
Quarter: 2014Q4

REPORT INFORMATION
  Report Type: Spontaneous
  Country: US (occurrence: US)
  Receive Date: 20141002
  Receipt Date: 20141002
  Transmission Date: 20150528
  Serious: Yes (Other)
  Sender: FDA-Public Use
  Company Number: US-BAYER-2014-138662

PATIENT
  Age: 64 Year
  Sex: Male

DRUGS (2)
  1. XOFIGO [Suspect]
     Active Substance: RADIUM RA-223 DICHLORIDE
     Indication: PROSTATE CANCER
     Dosage: UNK
     Route: 042
     Dates: start: 20140331
  2. XOFIGO [Suspect]
     Active Substance: RADIUM RA-223 DICHLORIDE
     Indication: PROSTATE CANCER
     Dosage: 106.2
     Route: 042
     Dates: start: 20140731, end: 20140731

REACTIONS (4)
  - Haemoglobin decreased [Not Recovered/Not Resolved]
  - Neutrophil count decreased [None]
  - Influenza [None]
  - Ill-defined disorder [None]

NARRATIVE: CASE EVENT DATE: 20140905
